FAERS Safety Report 5677799-X (Version None)
Quarter: 2008Q1

REPORT INFORMATION
  Report Type: 
  Country: None (occurrence: None)
  Receive Date: 20080318
  Receipt Date: 20080313
  Transmission Date: 20080703
  Serious: Yes (Other)
  Sender: FDA-Public Use
  Company Number: URSO-2007-207

PATIENT
  Age: 48 Year
  Sex: Female

DRUGS (3)
  1. URSODEOXYCHOLIC ACID (DELURSAN) TABLETS 250 MG [Suspect]
     Indication: BILIARY CIRRHOSIS PRIMARY
     Dosage: 500 MG PO
     Route: 048
     Dates: start: 20071014, end: 20071021
  2. METEOSPASMYL (ALVERINE CITRATE, SIMETICONE) [Concomitant]
  3. SPASFON (PHLOROGLUCINOL/ TRIMETHYLPHLOROGLUCINOL) [Concomitant]

REACTIONS (2)
  - CONDITION AGGRAVATED [None]
  - CYTOLYTIC HEPATITIS [None]
